FAERS Safety Report 4989126-1 (Version None)
Quarter: 2006Q1

REPORT INFORMATION
  Report Type: 
  Country: None (occurrence: None)
  Receive Date: 20060314
  Receipt Date: 20051227
  Transmission Date: 20060701
  Serious: Yes (Other)
  Sender: FDA-Public Use
  Company Number: 200515170BCC

PATIENT
  Age: 69 Year
  Sex: Female
  Weight: 74.8435 kg

DRUGS (4)
  1. ALEVE [Suspect]
     Indication: ARTHRALGIA
     Dosage: ORAL
     Route: 048
  2. LOTREL [Concomitant]
  3. ATIVAN [Concomitant]
  4. TYLENOL (CAPLET) [Concomitant]

REACTIONS (1)
  - ULCER [None]
